FAERS Safety Report 5925338-8 (Version None)
Quarter: 2008Q4

REPORT INFORMATION
  Report Type: 
  Country: None (occurrence: None)
  Receive Date: 20081020
  Receipt Date: 20081020
  Transmission Date: 20090506
  Serious: Yes (Hospitalization, Other)
  Sender: FDA-Public Use
  Company Number: None

PATIENT
  Age: 65 Year
  Sex: Female
  Weight: 81.6475 kg

DRUGS (1)
  1. CHANTIX [Suspect]
     Indication: SMOKING CESSATION THERAPY
     Dosage: 1 TABLET DAILY
     Dates: start: 20080903, end: 20080905

REACTIONS (10)
  - DIZZINESS [None]
  - DYSSTASIA [None]
  - FACIAL PALSY [None]
  - HEADACHE [None]
  - HERPES ZOSTER OTICUS [None]
  - HYPERSENSITIVITY [None]
  - IMPAIRED DRIVING ABILITY [None]
  - IMPAIRED WORK ABILITY [None]
  - NAUSEA [None]
  - VOMITING [None]
